FAERS Safety Report 20694307 (Version 1)
Quarter: 2022Q2

REPORT INFORMATION
  Report Type: Spontaneous
  Country: FR (occurrence: FR)
  Receive Date: 20220411
  Receipt Date: 20220411
  Transmission Date: 20220721
  Serious: Yes (Hospitalization)
  Sender: FDA-Public Use
  Company Number: FR-INSMED, INC.-2022-00914-FR

PATIENT
  Age: 8 Year
  Sex: Female

DRUGS (1)
  1. ARIKAYCE [Suspect]
     Active Substance: AMIKACIN
     Indication: Mycobacterial infection
     Dosage: 590 MILLIGRAM, ONE VIAL PER DAY
     Route: 055
     Dates: start: 202203, end: 202203

REACTIONS (6)
  - Lung transplant [Unknown]
  - Off label use [Unknown]
  - Incorrect route of product administration [Unknown]
  - Wrong device used [Unknown]
  - Product administered to patient of inappropriate age [Unknown]
  - Therapy interrupted [Unknown]

NARRATIVE: CASE EVENT DATE: 20220326
